FAERS Safety Report 12642682 (Version 2)
Quarter: 2016Q4

REPORT INFORMATION
  Report Type: Report from Study
  Country: FR (occurrence: FR)
  Receive Date: 20160810
  Receipt Date: 20161124
  Transmission Date: 20170207
  Serious: Yes (Hospitalization, Other)
  Sender: FDA-Public Use
  Company Number: FR-ROCHE-1811211

PATIENT
  Age: 70 Year
  Sex: Male
  Weight: 58 kg

DRUGS (16)
  1. CARBOPLATIN. [Concomitant]
     Active Substance: CARBOPLATIN
     Route: 065
     Dates: start: 20150715
  2. CARBOPLATIN. [Concomitant]
     Active Substance: CARBOPLATIN
     Route: 065
     Dates: start: 20150805
  3. PEMETREXED [Concomitant]
     Active Substance: PEMETREXED
     Route: 065
     Dates: start: 20151118
  4. OXYNORM [Concomitant]
     Active Substance: OXYCODONE HYDROCHLORIDE
     Indication: PAIN
     Route: 048
     Dates: start: 20160109
  5. INEXIUM [Concomitant]
     Active Substance: ESOMEPRAZOLE
     Indication: ABDOMINAL PAIN UPPER
     Route: 048
     Dates: start: 20151028
  6. PEMETREXED [Concomitant]
     Active Substance: PEMETREXED
     Route: 065
     Dates: start: 20150805
  7. PEMETREXED [Concomitant]
     Active Substance: PEMETREXED
     Route: 065
     Dates: start: 20150825
  8. PEMETREXED [Concomitant]
     Active Substance: PEMETREXED
     Route: 065
     Dates: start: 20150624
  9. PEMETREXED [Concomitant]
     Active Substance: PEMETREXED
     Route: 065
     Dates: start: 20151007
  10. PEMETREXED [Concomitant]
     Active Substance: PEMETREXED
     Route: 065
     Dates: start: 20150916
  11. PEMETREXED [Concomitant]
     Active Substance: PEMETREXED
     Route: 065
     Dates: start: 20150715
  12. OXYCONTIN [Concomitant]
     Active Substance: OXYCODONE HYDROCHLORIDE
     Indication: PAIN
     Route: 048
     Dates: start: 20160109
  13. CARBOPLATIN. [Concomitant]
     Active Substance: CARBOPLATIN
     Route: 065
     Dates: start: 20150624
  14. PEMETREXED [Concomitant]
     Active Substance: PEMETREXED
     Route: 065
     Dates: start: 20151028
  15. BEVACIZUMAB [Suspect]
     Active Substance: BEVACIZUMAB
     Indication: NON-SMALL CELL LUNG CANCER
     Dosage: LAST DOSE PRIOR TO SERIOUS ADVERSE EVENT: 18/NOV/2015
     Route: 065
     Dates: start: 20150825
  16. CARBOPLATIN. [Concomitant]
     Active Substance: CARBOPLATIN
     Route: 065
     Dates: start: 20150825

REACTIONS (4)
  - Blood alkaline phosphatase increased [Not Recovered/Not Resolved]
  - Gamma-glutamyltransferase increased [Not Recovered/Not Resolved]
  - Aspartate aminotransferase increased [Not Recovered/Not Resolved]
  - Bile duct stenosis [Unknown]

NARRATIVE: CASE EVENT DATE: 20160526
